FAERS Safety Report 7154477-1 (Version None)
Quarter: 2010Q4

REPORT INFORMATION
  Report Type: 
  Country: None (occurrence: None)
  Receive Date: 20101213
  Receipt Date: 20101206
  Transmission Date: 20110411
  Serious: Yes (Other)
  Sender: FDA-Public Use
  Company Number: US-AMGEN-USASP2010007942

PATIENT

DRUGS (1)
  1. EPOGEN [Suspect]
     Indication: RENAL FAILURE CHRONIC

REACTIONS (5)
  - ARTERIOVENOUS GRAFT SITE HAEMORRHAGE [None]
  - DYSPNOEA [None]
  - POOR QUALITY DRUG ADMINISTERED [None]
  - VASCULAR GRAFT COMPLICATION [None]
  - VISION BLURRED [None]
